FAERS Safety Report 6239445-6 (Version None)
Quarter: 2009Q2

REPORT INFORMATION
  Report Type: 
  Country: None (occurrence: None)
  Receive Date: 20090618
  Receipt Date: 20090618
  Transmission Date: 20091009
  Serious: Yes (Other)
  Sender: FDA-Public Use
  Company Number: None

PATIENT
  Age: 47 Year
  Sex: Female
  Weight: 73.4827 kg

DRUGS (1)
  1. TOPIRAMATE 50MG ZYGENERICS [Suspect]
     Indication: CLUSTER HEADACHE
     Dosage: 150MG  AM AND PM

REACTIONS (4)
  - ARTHRALGIA [None]
  - ERYTHEMA [None]
  - JOINT SWELLING [None]
  - PRODUCT SUBSTITUTION ISSUE [None]
